FAERS Safety Report 8177226-7 (Version None)
Quarter: 2012Q1

REPORT INFORMATION
  Report Type: 
  Country: None (occurrence: None)
  Receive Date: 20120124
  Receipt Date: 20111003
  Transmission Date: 20120608
  Serious: No
  Sender: FDA-Public Use
  Company Number: US-006470

PATIENT
  Age: 67 Year
  Sex: Male
  Weight: 103.8737 kg

DRUGS (2)
  1. DEGARELIX (240 MG, 80 MG) [Suspect]
     Indication: PROSTATE CANCER
     Dosage: (240 MG SUBCUTANEOUS), 80 MG 1X/28 DAYS SUBCUTANEOUS)
     Route: 058
     Dates: start: 20110713, end: 20110713
  2. DEGARELIX (240 MG, 80 MG) [Suspect]
     Indication: PROSTATE CANCER
     Dosage: (240 MG SUBCUTANEOUS), 80 MG 1X/28 DAYS SUBCUTANEOUS)
     Route: 058
     Dates: start: 20110813

REACTIONS (1)
  - BLOOD TESTOSTERONE INCREASED [None]
